FAERS Safety Report 18382714 (Version 1)
Quarter: 2020Q4

REPORT INFORMATION
  Report Type: Spontaneous
  Country: US (occurrence: US)
  Receive Date: 20201013
  Receipt Date: 20201013
  Transmission Date: 20210114
  Serious: Yes (Other)
  Sender: FDA-Public Use
  Company Number: None

PATIENT
  Sex: Female

DRUGS (17)
  1. VITAMIN C [Concomitant]
     Active Substance: ASCORBIC ACID
  2. VITAMIN D [Concomitant]
     Active Substance: VITAMIN D NOS
  3. LANSOPRAZOLE. [Concomitant]
     Active Substance: LANSOPRAZOLE
  4. ATENOLOL. [Concomitant]
     Active Substance: ATENOLOL
  5. CALCIUM/D [Concomitant]
  6. FISH OIL [Concomitant]
     Active Substance: FISH OIL
  7. ENBREL [Suspect]
     Active Substance: ETANERCEPT
     Indication: RHEUMATOID ARTHRITIS
     Route: 058
     Dates: start: 20160120
  8. MAGNESIUM [Concomitant]
     Active Substance: MAGNESIUM
  9. MOTRIN IB [Concomitant]
     Active Substance: IBUPROFEN
  10. TYLENOL [Concomitant]
     Active Substance: ACETAMINOPHEN
  11. FLAX SEED [Concomitant]
     Active Substance: FLAX SEED
  12. OLMESA MEDOX [Concomitant]
  13. ROSUVASTIN [Concomitant]
     Active Substance: ROSUVASTATIN
  14. ZINC SULFATE. [Concomitant]
     Active Substance: ZINC SULFATE
  15. METHOTREXATE. [Concomitant]
     Active Substance: METHOTREXATE
  16. COENZYME Q10 [Concomitant]
     Active Substance: DIETARY SUPPLEMENT\UBIDECARENONE
  17. AMLODIPINE [Concomitant]
     Active Substance: AMLODIPINE BESYLATE

REACTIONS (1)
  - Therapy interrupted [None]
